FAERS Safety Report 7329929-1 (Version None)
Quarter: 2011Q1

REPORT INFORMATION
  Report Type: 
  Country: None (occurrence: None)
  Receive Date: 20110303
  Receipt Date: 20110211
  Transmission Date: 20110831
  Serious: Yes (Other)
  Sender: FDA-Public Use
  Company Number: BR-AMGEN-BRASP2010007785

PATIENT
  Age: 25 Year
  Sex: Male

DRUGS (4)
  1. PEGINTERFERON ALFA-2A [Suspect]
     Indication: HEPATITIS C
     Dosage: 180 A?G, QWK
     Route: 058
     Dates: start: 20100312
  2. RIBAVIRIN [Suspect]
     Indication: PRODUCT USED FOR UNKNOWN INDICATION
     Dosage: 5 DF, UNK
  3. DIPYRONE [Concomitant]
  4. GRANULOKINE [Suspect]
     Indication: NEUTROPENIA
     Dosage: UNK UNK, QWK
     Route: 058

REACTIONS (7)
  - DRUG INEFFECTIVE [None]
  - PAIN [None]
  - NAUSEA [None]
  - HEADACHE [None]
  - WOUND [None]
  - NEUTROPENIA [None]
  - HYPERSENSITIVITY [None]
